FAERS Safety Report 15567595 (Version 1)
Quarter: 2018Q4

REPORT INFORMATION
  Report Type: Spontaneous
  Country: HU (occurrence: HU)
  Receive Date: 20181030
  Receipt Date: 20181030
  Transmission Date: 20190205
  Serious: Yes (Other)
  Sender: FDA-Public Use
  Company Number: HU-SA-2018SA295816

PATIENT
  Age: 60 Year
  Sex: Female

DRUGS (13)
  1. VITAMIN D3 [Concomitant]
     Active Substance: CHOLECALCIFEROL
     Indication: PROPHYLAXIS
     Dosage: 3000 IU, QD
     Route: 048
  2. OXYCONTIN [Concomitant]
     Active Substance: OXYCODONE HYDROCHLORIDE
     Indication: PAIN
     Dosage: 20 MG, BID
     Route: 048
  3. SOLU-MEDROL [Concomitant]
     Active Substance: METHYLPREDNISOLONE SODIUM SUCCINATE
     Indication: PREMEDICATION
     Dosage: 125 MG PER CHEMOTHERAPY
     Route: 042
  4. OXALIPLATIN. [Suspect]
     Active Substance: OXALIPLATIN
     Indication: ANAL CANCER
     Dosage: 130 MG, QOW
     Route: 042
     Dates: start: 20180912, end: 20180926
  5. BENFOGAMMA [Concomitant]
     Indication: PROPHYLAXIS
     Dosage: 50 MG, BID
     Route: 048
  6. CARVEDILOL HEXAL [Concomitant]
     Active Substance: CARVEDILOL
     Indication: BLOOD PRESSURE MANAGEMENT
     Dosage: 12.5 MG, BID
     Route: 048
  7. ONDANSETRON [Concomitant]
     Active Substance: ONDANSETRON
     Indication: PREMEDICATION
     Dosage: 8 MG ONCE PER CHEMOTHERAPY TREATMENT
     Route: 042
  8. CITROKALCIUM [Concomitant]
     Indication: PROPHYLAXIS
     Dosage: 200 MG, QD
     Route: 048
  9. FLUOROURACIL. [Concomitant]
     Active Substance: FLUOROURACIL
     Indication: ANAL CANCER
     Dosage: 700 MG  ON DAYS 1 AND 2 OF THE BIWEEKLY CHEMOTHERAPY TREATMENT CYCLE
     Route: 042
  10. NEO FERRO FOLGAMMA [Concomitant]
     Indication: ANAEMIA
     Dosage: 1 DF= 114 MG FERROUS SULPHATE, DRIED+0.8 MG FOLIC ACID
     Route: 048
  11. NEO FERRO FOLGAMMA [Concomitant]
     Indication: ANAEMIA PROPHYLAXIS
  12. CALCIUM FOLINATE [Concomitant]
     Active Substance: LEUCOVORIN CALCIUM
     Indication: ANAL CANCER
     Dosage: 350 MG  ON DAYS 1 AND 2 OF THE BIWEEKLY CHEMOTHERAPY TREATMENT CYCLE
     Route: 042
     Dates: start: 20180309
  13. CLONAZEPAM. [Concomitant]
     Active Substance: CLONAZEPAM
     Indication: PANIC DISORDER
     Dosage: 0.5 MG, TID
     Route: 048

REACTIONS (9)
  - Hyperhidrosis [Recovered/Resolved]
  - Burning sensation [Recovered/Resolved]
  - Pruritus [Recovered/Resolved]
  - Pain in extremity [Recovered/Resolved]
  - Hypoaesthesia [Recovered/Resolved]
  - Vomiting [Recovered/Resolved]
  - Abdominal pain lower [Recovered/Resolved]
  - Malaise [Recovered/Resolved]
  - Nausea [Recovered/Resolved]

NARRATIVE: CASE EVENT DATE: 20180926
